FAERS Safety Report 21702584 (Version 1)
Quarter: 2022Q4

REPORT INFORMATION
  Report Type: Spontaneous
  Country: CN (occurrence: None)
  Receive Date: 20221208
  Receipt Date: 20221208
  Transmission Date: 20230113
  Serious: Yes (Other)
  Sender: FDA-Public Use
  Company Number: CN-ROCHE-3235469

PATIENT
  Age: 58 Year
  Sex: Female

DRUGS (14)
  1. AVASTIN [Suspect]
     Active Substance: BEVACIZUMAB
     Indication: Endometrial adenocarcinoma
     Dosage: 28/FEB/2022, 25/MAR/2022, TC REGIMEN+ BEVACIZUMAB
     Route: 065
  2. AVASTIN [Suspect]
     Active Substance: BEVACIZUMAB
     Dosage: 30/SEP/2022, 21/OCT/2022, 11/NOV/2022, 02/DEC/2022, MAINTENANCE THERAPY
     Route: 065
  3. PACLITAXEL [Concomitant]
     Active Substance: PACLITAXEL
     Indication: Endometrial adenocarcinoma
     Dosage: 14/JAN/2022, 05/FEB/2022, TC REGIMEN
  4. PACLITAXEL [Concomitant]
     Active Substance: PACLITAXEL
     Dosage: 28/FEB/2022, 25/MAR/2022, TC+BEVACIZUMAB REGIMEN
  5. PACLITAXEL [Concomitant]
     Active Substance: PACLITAXEL
     Dosage: TC REGIMEN
     Dates: start: 20220419
  6. PACLITAXEL [Concomitant]
     Active Substance: PACLITAXEL
     Dosage: TC REGIMEN
     Dates: start: 20220516
  7. PACLITAXEL [Concomitant]
     Active Substance: PACLITAXEL
     Dosage: 06/JUL/2022, 03/AUG/2022, POSTOPERATIVE TC REGIMEN
  8. CARBOPLATIN [Concomitant]
     Active Substance: CARBOPLATIN
     Indication: Endometrial adenocarcinoma
     Dosage: 14/JAN/2022, 05/FEB/2022, TC REGIMEN
  9. CARBOPLATIN [Concomitant]
     Active Substance: CARBOPLATIN
     Dosage: 28/FEB/2022, 25/MAR/2022, TC + BEVACIZUMAB REGIMEN
  10. CARBOPLATIN [Concomitant]
     Active Substance: CARBOPLATIN
     Dosage: TC REGIMEN
     Dates: start: 20220419
  11. CARBOPLATIN [Concomitant]
     Active Substance: CARBOPLATIN
     Dosage: TC-REGIMEN
     Dates: start: 20220516
  12. CARBOPLATIN [Concomitant]
     Active Substance: CARBOPLATIN
     Dosage: 06/JUL/2022, 03/AUG/2022, POSTOPERATIVE TC REGIMEN
  13. CARBOPLATIN [Concomitant]
     Active Substance: CARBOPLATIN
     Dosage: DOXORUBICIN HYDROCHLORIDE LIPOSOME INJECTION + CARBOPLATIN REGIMEN
     Dates: start: 20220905
  14. DOXORUBICIN HYDROCHLORIDE [Concomitant]
     Active Substance: DOXORUBICIN HYDROCHLORIDE
     Indication: Endometrial adenocarcinoma
     Dosage: DOXORUBICIN HYDROCHLORIDE LIPOSOME INJECTION + CARBOPLATIN REGIMEN
     Dates: start: 20220905

REACTIONS (2)
  - Myelosuppression [Unknown]
  - Neuropathy peripheral [Unknown]

NARRATIVE: CASE EVENT DATE: 20220101
